FAERS Safety Report 12629439 (Version 7)
Quarter: 2016Q4

REPORT INFORMATION
  Report Type: Report from Study
  Country: CA (occurrence: CA)
  Receive Date: 20160808
  Receipt Date: 20161228
  Transmission Date: 20170207
  Serious: Yes (Other)
  Sender: FDA-Public Use
  Company Number: CA-JNJFOC-20160624278

PATIENT
  Age: 11 Year
  Sex: Female
  Weight: 27.5 kg

DRUGS (9)
  1. REMICADE [Suspect]
     Active Substance: INFLIXIMAB
     Indication: CROHN^S DISEASE
     Route: 042
     Dates: start: 20160926
  2. REMICADE [Suspect]
     Active Substance: INFLIXIMAB
     Indication: CROHN^S DISEASE
     Dosage: 14TH INFUSION
     Route: 042
     Dates: start: 20160822
  3. REMICADE [Suspect]
     Active Substance: INFLIXIMAB
     Indication: CROHN^S DISEASE
     Dosage: 18TH INFUSION
     Route: 042
     Dates: start: 20161219
  4. IMURAN [Concomitant]
     Active Substance: AZATHIOPRINE
     Route: 048
  5. REMICADE [Suspect]
     Active Substance: INFLIXIMAB
     Indication: CROHN^S DISEASE
     Route: 042
     Dates: start: 20150209
  6. REMICADE [Suspect]
     Active Substance: INFLIXIMAB
     Indication: CROHN^S DISEASE
     Route: 042
     Dates: start: 20150727
  7. REMICADE [Suspect]
     Active Substance: INFLIXIMAB
     Indication: CROHN^S DISEASE
     Dosage: 17TH INFUSION
     Route: 042
     Dates: start: 20161121
  8. REMICADE [Suspect]
     Active Substance: INFLIXIMAB
     Indication: CROHN^S DISEASE
     Dosage: 16TH INFUSION
     Route: 042
     Dates: start: 20161024
  9. MEZAVANT [Concomitant]
     Active Substance: MESALAMINE
     Route: 048

REACTIONS (8)
  - Nausea [Recovered/Resolved]
  - Frequent bowel movements [Unknown]
  - General physical health deterioration [Unknown]
  - Abdominal pain [Recovered/Resolved]
  - Off label use [Unknown]
  - Product use issue [Unknown]
  - Diarrhoea haemorrhagic [Unknown]
  - Vomiting [Recovered/Resolved]

NARRATIVE: CASE EVENT DATE: 20150209
